FAERS Safety Report 22295710 (Version 1)
Quarter: 2023Q2

REPORT INFORMATION
  Report Type: Spontaneous
  Country: US (occurrence: None)
  Receive Date: 20230507
  Receipt Date: 20230507
  Transmission Date: 20230722
  Serious: Yes (Life-Threatening, Hospitalization, Disabling, Other)
  Sender: FDA-Public Use
  Company Number: None

PATIENT
  Age: 73 Year
  Sex: Male
  Weight: 83.25 kg

DRUGS (11)
  1. CITALOPRAM HYDROBROMIDE [Suspect]
     Active Substance: CITALOPRAM HYDROBROMIDE
     Indication: Depression
     Dosage: FREQUENCY : DAILY;?
     Dates: start: 20230426, end: 20230502
  2. Amplodipine [Concomitant]
  3. Apicaban [Concomitant]
  4. ATENOLOL [Concomitant]
     Active Substance: ATENOLOL
  5. CITALOPRAM [Concomitant]
     Active Substance: CITALOPRAM HYDROBROMIDE
  6. Losartin-hydrochlorotjiazide [Concomitant]
  7. METFORMIN [Concomitant]
     Active Substance: METFORMIN HYDROCHLORIDE
  8. Tirezepatide [Concomitant]
  9. VITAMIN B12 [Concomitant]
     Active Substance: CYANOCOBALAMIN
  10. Multi Vitamin [Concomitant]
  11. CALCIUM [Concomitant]
     Active Substance: CALCIUM

REACTIONS (14)
  - Product substitution issue [None]
  - Influenza [None]
  - Paraesthesia [None]
  - Paraesthesia [None]
  - Feeling hot [None]
  - Hyperhidrosis [None]
  - Headache [None]
  - Electric shock sensation [None]
  - Hypophagia [None]
  - Gait disturbance [None]
  - Delusion [None]
  - Withdrawal syndrome [None]
  - Asthenia [None]
  - Fatigue [None]

NARRATIVE: CASE EVENT DATE: 20230502
